FAERS Safety Report 8785078 (Version 2)
Quarter: 2013Q1

REPORT INFORMATION
  Report Type: Report from Study
  Country: US (occurrence: US)
  Receive Date: 20120914
  Receipt Date: 20130214
  Transmission Date: 20140127
  Serious: Yes (Other)
  Sender: FDA-Public Use
  Company Number: US-BAYER-2012-094443

PATIENT
  Age: 47 Year
  Sex: Female

DRUGS (4)
  1. BEATSERON [Suspect]
     Indication: MULTIPLE SCLEROSIS
     Dosage: 6 MIU, QOD
     Route: 058
     Dates: start: 20120808
  2. BEATSERON [Suspect]
     Indication: MULTIPLE SCLEROSIS
     Dosage: 8 MIU, QOD
     Route: 058
  3. METHOTREXATE [Concomitant]
  4. PREDNISONE [Concomitant]
     Indication: CATARACT OPERATION
     Dosage: TAPER

REACTIONS (10)
  - Uveitis [Not Recovered/Not Resolved]
  - Haematochezia [Recovered/Resolved]
  - Alopecia [Not Recovered/Not Resolved]
  - Fatigue [Not Recovered/Not Resolved]
  - Vulvovaginal discomfort [Not Recovered/Not Resolved]
  - Injection site urticaria [Not Recovered/Not Resolved]
  - Headache [Not Recovered/Not Resolved]
  - Anxiety [Not Recovered/Not Resolved]
  - Influenza like illness [Not Recovered/Not Resolved]
  - Pain [Not Recovered/Not Resolved]
